FAERS Safety Report 6456846-1 (Version None)
Quarter: 2009Q4

REPORT INFORMATION
  Report Type: 
  Country: None (occurrence: None)
  Receive Date: 20091124
  Receipt Date: 20091124
  Transmission Date: 20100525
  Serious: Yes (Life-Threatening, Other)
  Sender: FDA-Public Use
  Company Number: None

PATIENT
  Age: 72 Year
  Sex: Female
  Weight: 58.9676 kg

DRUGS (1)
  1. BONIVA [Suspect]
     Indication: OSTEOPOROSIS
     Dosage: 1 PILL 1 MONTH
     Dates: start: 20091121, end: 20091121

REACTIONS (9)
  - CHEST PAIN [None]
  - DECREASED APPETITE [None]
  - FATIGUE [None]
  - GASTROOESOPHAGEAL REFLUX DISEASE [None]
  - HEADACHE [None]
  - HYPERPYREXIA [None]
  - IRRITABILITY [None]
  - PARALYSIS [None]
  - PRODUCT QUALITY ISSUE [None]
